FAERS Safety Report 7645876-X (Version None)
Quarter: 2011Q3

REPORT INFORMATION
  Report Type: 
  Country: None (occurrence: None)
  Receive Date: 20110729
  Receipt Date: 20110725
  Transmission Date: 20111222
  Serious: Yes (Hospitalization)
  Sender: FDA-Public Use
  Company Number: US-GENENTECH-322015

PATIENT
  Age: 69 Year
  Sex: Male
  Weight: 80.272 kg

DRUGS (3)
  1. TREANDA [Suspect]
     Indication: CHRONIC LYMPHOCYTIC LEUKAEMIA
     Dosage: 60 MG, UNK
     Route: 042
     Dates: start: 20110209, end: 20110421
  2. RITUXAN [Suspect]
     Indication: CHRONIC LYMPHOCYTIC LEUKAEMIA
     Dosage: 187.5 MG/M2, UNK
     Route: 042
     Dates: start: 20110209, end: 20110421
  3. DEXAMETHASONE [Suspect]
     Indication: CHRONIC LYMPHOCYTIC LEUKAEMIA
     Dosage: 12 MG, UNK
     Route: 042
     Dates: start: 20110209, end: 20110421

REACTIONS (8)
  - DYSPNOEA [None]
  - PNEUMONITIS [None]
  - PNEUMONIA [None]
  - PROTEINURIA [None]
  - MYCOBACTERIAL INFECTION [None]
  - COUGH [None]
  - FATIGUE [None]
  - PYREXIA [None]
